FAERS Safety Report 19414941 (Version 6)
Quarter: 2021Q4

REPORT INFORMATION
  Report Type: Spontaneous
  Country: US (occurrence: US)
  Receive Date: 20210615
  Receipt Date: 20211012
  Transmission Date: 20220303
  Serious: No
  Sender: FDA-Public Use
  Company Number: US-ORGANON-O2106USA000666

PATIENT
  Age: 38 Year
  Sex: Female
  Weight: 52.15 kg

DRUGS (5)
  1. PREGNYL [Suspect]
     Active Substance: CHORIOGONADOTROPIN ALFA
     Indication: Ovulation induction
     Dosage: 0.5 ML (5000IU) (MIX 1ML OF PREGNYL SOLVENT WITH THE VIAL OF 10000IU)
     Dates: start: 20210601, end: 20210601
  2. WATER FOR INJECTION [Suspect]
     Active Substance: WATER
     Dosage: UNK
  3. FOLLISTIM AQ [Concomitant]
     Active Substance: FOLLITROPIN
     Dosage: 2400 INTERNATIONAL UNIT (IU)
     Dates: start: 20210524, end: 20210531
  4. GANIRELIX ACETATE [Concomitant]
     Active Substance: GANIRELIX ACETATE
     Dosage: 1000 MICROGRAM, 500 MCG X 1 DAY, 250 MCG
     Dates: start: 20210528, end: 20210531
  5. MENOPUR [Concomitant]
     Active Substance: FOLLITROPIN\LUTEINIZING HORMONE
     Dosage: 1200 INTERNATIONAL UNIT (IU), DOSAGE FORM - POWDER VIAL
     Route: 058
     Dates: start: 20210524, end: 20210531

REACTIONS (2)
  - Drug ineffective [Recovered/Resolved]
  - Product quality issue [Unknown]

NARRATIVE: CASE EVENT DATE: 20210601
